FAERS Safety Report 20493966 (Version 2)
Quarter: 2022Q1

REPORT INFORMATION
  Report Type: Spontaneous
  Country: US (occurrence: US)
  Receive Date: 20220221
  Receipt Date: 20220314
  Transmission Date: 20220423
  Serious: Yes (Hospitalization)
  Sender: FDA-Public Use
  Company Number: US-CELGENE-USA-20220203726

PATIENT
  Age: 77 Year
  Sex: Male
  Weight: 93.9 kg

DRUGS (26)
  1. AZACITIDINE [Suspect]
     Active Substance: AZACITIDINE
     Indication: Myelodysplastic syndrome
     Dosage: 75 MILLIGRAM/MILLILITERS
     Route: 041
     Dates: start: 20210805, end: 20211224
  2. AZACITIDINE [Suspect]
     Active Substance: AZACITIDINE
     Dosage: 75 MILLIGRAM/MILLILITERS
     Route: 041
     Dates: start: 20220118
  3. VENETOCLAX [Suspect]
     Active Substance: VENETOCLAX
     Indication: Myelodysplastic syndrome
     Route: 048
     Dates: start: 20210805, end: 20211224
  4. VENETOCLAX [Suspect]
     Active Substance: VENETOCLAX
     Route: 048
     Dates: start: 20220118
  5. AZELASTINE [Concomitant]
     Active Substance: AZELASTINE
     Indication: Multiple allergies
     Dosage: 548 MILLIEQUIVALENTS
     Route: 045
     Dates: start: 20210907, end: 20210914
  6. AZELASTINE [Concomitant]
     Active Substance: AZELASTINE
     Indication: Pneumonia
  7. LEVAQUIN [Concomitant]
     Active Substance: LEVOFLOXACIN
     Indication: Infection prophylaxis
     Dosage: 1000 MILLIGRAM
     Route: 048
     Dates: start: 20210805
  8. CLOBETASOL [Concomitant]
     Active Substance: CLOBETASOL
     Indication: Acute febrile neutrophilic dermatosis
     Dosage: 2 DOSAGE FORMS
     Route: 065
     Dates: start: 20210820
  9. ALLOPURINOL [Concomitant]
     Active Substance: ALLOPURINOL
     Indication: Blood uric acid normal
     Dosage: 300 MILLIGRAM
     Route: 048
     Dates: start: 20210805
  10. ALLOPURINOL [Concomitant]
     Active Substance: ALLOPURINOL
     Indication: Chondrocalcinosis pyrophosphate
     Dosage: 300 MILLIGRAM
     Route: 048
     Dates: start: 20210820
  11. ONDANSETRON [Concomitant]
     Active Substance: ONDANSETRON
     Indication: Prophylaxis of nausea and vomiting
     Dosage: 8 MILLIGRAM
     Route: 048
     Dates: start: 20210808
  12. NYSTATIN [Concomitant]
     Active Substance: NYSTATIN
     Indication: Infection prophylaxis
     Dosage: 100000 UNITS/ML
     Route: 048
     Dates: start: 20210907, end: 20210914
  13. NYSTATIN [Concomitant]
     Active Substance: NYSTATIN
     Indication: Pneumonia
     Dosage: 100000 UNITS/ML
     Route: 048
     Dates: start: 20210922
  14. CELECOXIB [Concomitant]
     Active Substance: CELECOXIB
     Indication: Acute febrile neutrophilic dermatosis
     Dosage: 400 MILLIGRAM
     Route: 048
     Dates: start: 20210805
  15. COLCHICINE [Concomitant]
     Active Substance: COLCHICINE
     Indication: Acute febrile neutrophilic dermatosis
     Dosage: .6 MILLIGRAM
     Route: 048
     Dates: start: 20210805
  16. ESCITALOPRAM [Concomitant]
     Active Substance: ESCITALOPRAM OXALATE
     Indication: Anxiety
     Dosage: 20 MILLIGRAM
     Route: 048
     Dates: start: 20210805
  17. FAMOTIDINE [Concomitant]
     Active Substance: FAMOTIDINE
     Indication: Gastrooesophageal reflux disease
     Dosage: 20 MILLIGRAM
     Route: 048
     Dates: start: 20210805
  18. LEVOFLOXACIN [Concomitant]
     Active Substance: LEVOFLOXACIN
     Indication: Acute febrile neutrophilic dermatosis
     Dosage: 500 MILLIGRAM
     Route: 048
     Dates: start: 20210805
  19. LEVOFLOXACIN [Concomitant]
     Active Substance: LEVOFLOXACIN
     Indication: Pneumonia
     Dosage: 750 MILLIGRAM
     Route: 048
     Dates: start: 20210907, end: 20210914
  20. LISINOPRIL [Concomitant]
     Active Substance: LISINOPRIL
     Indication: Hypertension
     Dosage: 30 MILLIGRAM
     Route: 048
     Dates: start: 20210805
  21. LORATADINE [Concomitant]
     Active Substance: LORATADINE
     Indication: Multiple allergies
     Dosage: 10 MILLIGRAM
     Route: 048
     Dates: start: 20210805
  22. MAGNESIUM [Concomitant]
     Active Substance: MAGNESIUM
     Indication: Blood magnesium decreased
     Dosage: 71.5 MILLIGRAM
     Route: 048
     Dates: start: 20210820
  23. MESALAMINE [Concomitant]
     Active Substance: MESALAMINE
     Indication: Colitis ulcerative
     Dosage: 1.5 MILLIGRAM
     Route: 048
     Dates: start: 20210805
  24. PANTOPRAZOLE [Concomitant]
     Active Substance: PANTOPRAZOLE
     Indication: Gastrooesophageal reflux disease
     Dosage: 40 MILLIGRAM
     Route: 048
     Dates: start: 20210805
  25. PREDNISOLONE [Concomitant]
     Active Substance: PREDNISOLONE
     Indication: Chondrocalcinosis pyrophosphate
     Dosage: 20 MILLIGRAM
     Route: 048
     Dates: start: 20210805
  26. LORAZEPAM [Concomitant]
     Active Substance: LORAZEPAM
     Indication: Anxiety
     Dosage: 1.5 MILLIGRAM
     Route: 048
     Dates: start: 20210805

REACTIONS (1)
  - Clostridium difficile colitis [Recovered/Resolved]

NARRATIVE: CASE EVENT DATE: 20211230
